FAERS Safety Report 6287646-3 (Version None)
Quarter: 2009Q4

REPORT INFORMATION
  Report Type: 
  Country: None (occurrence: None)
  Receive Date: 20090727
  Receipt Date: 20090727
  Transmission Date: 20100525
  Serious: No
  Sender: FDA-Public Use
  Company Number: None

PATIENT
  Age: 41 Year
  Sex: Male

DRUGS (6)
  1. LOPINAVIR AND RITONAVIR [Suspect]
     Dates: start: 20051228, end: 20060119
  2. EFAVIRENZ [Suspect]
     Dates: start: 20050601, end: 20051129
  3. EMTRICITABINE AND TENOFOVIR DISOPROXIL FUMARATE [Suspect]
     Dates: start: 20050601, end: 20051129
  4. SEPTRA [Concomitant]
  5. PEGINTERFERON ALPHA-2A [Concomitant]
  6. RIBAVIRIN [Concomitant]

REACTIONS (5)
  - HEPATITIS C ANTIBODY POSITIVE [None]
  - HEPATOTOXICITY [None]
  - HYPERSENSITIVITY [None]
  - IMMUNE RECONSTITUTION SYNDROME [None]
  - LIVER INJURY [None]
